FAERS Safety Report 5801783-6 (Version None)
Quarter: 2008Q3

REPORT INFORMATION
  Report Type: 
  Country: None (occurrence: None)
  Receive Date: 20080702
  Receipt Date: 20080619
  Transmission Date: 20090109
  Serious: Yes (Hospitalization)
  Sender: FDA-Public Use
  Company Number: 236984K06USA

PATIENT
  Age: 54 Year
  Sex: Female

DRUGS (15)
  1. REBIF [Suspect]
     Indication: MULTIPLE SCLEROSIS
     Dosage: 44 MCG, 3 IN 1 WEEKS, SUBCUTANEOUS, 44 MCG, 3 IN 1 WEEKS, SUBCUTANEOUS
     Route: 058
     Dates: start: 20060418, end: 20061009
  2. REBIF [Suspect]
     Indication: MULTIPLE SCLEROSIS
     Dosage: 44 MCG, 3 IN 1 WEEKS, SUBCUTANEOUS, 44 MCG, 3 IN 1 WEEKS, SUBCUTANEOUS
     Route: 058
     Dates: start: 20061001
  3. SYNVISC (HYALURONATE SODIUM) [Suspect]
     Dosage: NOT REPORTED, 1 IN 6 MONTHS, NOT REPORTED
     Dates: start: 20050101, end: 20061010
  4. NEURONTIN [Concomitant]
  5. CELEBREX [Concomitant]
  6. PROZAC [Concomitant]
  7. SYNTHROID [Concomitant]
  8. PREVACID [Concomitant]
  9. LORTAB [Concomitant]
  10. DETROL LA [Concomitant]
  11. DEXEDRINE [Concomitant]
  12. BUSPAR [Concomitant]
  13. ZELNORM [Concomitant]
  14. ZOFRAN [Concomitant]
  15. AMITIZA (ALL OTHER THERAPEUTIC PRODUCTS) [Concomitant]

REACTIONS (2)
  - ARTHRALGIA [None]
  - ARTHROPATHY [None]
